FAERS Safety Report 17013399 (Version 1)
Quarter: 2019Q4

REPORT INFORMATION
  Report Type: Spontaneous
  Country: US (occurrence: US)
  Receive Date: 20191003
  Receipt Date: 20191003
  Transmission Date: 20200122
  Serious: No
  Sender: FDA-Public Use
  Company Number: None

PATIENT
  Age: 61 Year
  Sex: Male

DRUGS (1)
  1. REPATHA [Suspect]
     Active Substance: EVOLOCUMAB
     Dosage: ?          OTHER DOSE:140MG EVERY 2 WEEK;?
     Route: 058
     Dates: start: 201805

REACTIONS (3)
  - Back pain [None]
  - Arthralgia [None]
  - Musculoskeletal pain [None]

NARRATIVE: CASE EVENT DATE: 20191003
